FAERS Safety Report 5189594-9 (Version None)
Quarter: 2006Q4

REPORT INFORMATION
  Report Type: 
  Country: None (occurrence: None)
  Receive Date: 20061221
  Receipt Date: 20060625
  Transmission Date: 20070319
  Serious: No
  Sender: FDA-Public Use
  Company Number: US-AMGEN-KDL184320

PATIENT
  Sex: Female

DRUGS (2)
  1. ENBREL [Suspect]
     Indication: RHEUMATOID ARTHRITIS
     Route: 058
     Dates: start: 20041210
  2. PLAQUENIL [Concomitant]
     Dates: start: 20040101

REACTIONS (4)
  - ABDOMINAL DISCOMFORT [None]
  - CYSTITIS [None]
  - DYSURIA [None]
  - POLLAKIURIA [None]
